FAERS Safety Report 4632166-2 (Version None)
Quarter: 2005Q2

REPORT INFORMATION
  Report Type: 
  Country: None (occurrence: None)
  Receive Date: 20050331
  Receipt Date: 20040325
  Transmission Date: 20051028
  Serious: Yes (Hospitalization)
  Sender: FDA-Public Use
  Company Number: 200411492BCC

PATIENT
  Age: 48 Year
  Sex: Female

DRUGS (5)
  1. ALEVE [Suspect]
     Dosage: 13200 MG, ONCE, ORAL
     Route: 048
     Dates: start: 20040324, end: 20040325
  2. TYLENOL W/ CODEINE NO. 4 [Suspect]
  3. UNKNOWN OTC SLEEPING PILLS (SCOPOLAMINE AMINOXIDE HYDROBROMIDE) [Suspect]
  4. UNKNOWN PAIN PILLS (ANALGESICS) [Suspect]
  5. VODKA (ETHANOL) [Suspect]

REACTIONS (1)
  - STOMACH DISCOMFORT [None]
